FAERS Safety Report 5578623-6 (Version None)
Quarter: 2007Q4

REPORT INFORMATION
  Report Type: 
  Country: None (occurrence: None)
  Receive Date: 20071227
  Receipt Date: 20071227
  Transmission Date: 20080405
  Serious: Yes (Hospitalization)
  Sender: FDA-Public Use
  Company Number: None

PATIENT
  Age: 44 Year

DRUGS (9)
  1. ENALAPRIL MALEATE [Suspect]
     Indication: HYPERTENSION
     Dosage: PO DAILY X LAST WEEK
     Route: 048
  2. ASPIRIN [Concomitant]
  3. METHOTREXATE [Concomitant]
  4. SINGULAIR [Concomitant]
  5. LYRICA [Concomitant]
  6. ULTRAM [Concomitant]
  7. SYNTHROID [Concomitant]
  8. COREG [Concomitant]
  9. BUMEX [Concomitant]

REACTIONS (1)
  - ANGIOEDEMA [None]
